FAERS Safety Report 5247638-X (Version None)
Quarter: 2007Q1

REPORT INFORMATION
  Report Type: 
  Country: None (occurrence: None)
  Receive Date: 20070223
  Receipt Date: 20070223
  Transmission Date: 20070707
  Serious: Yes (Other)
  Sender: FDA-Public Use
  Company Number: None

PATIENT
  Age: 60 Year
  Sex: Female
  Weight: 72.1219 kg

DRUGS (1)
  1. CREST PRO-HEALTH TOOTPASTE PROCTOR + GAMBLE [Suspect]
     Indication: DENTAL CARE
     Dosage: 1 TEASPOON -APPROX-  2-3 TIMES PER DAY PO
     Route: 048
     Dates: start: 20070117, end: 20070203

REACTIONS (5)
  - DYSGEUSIA [None]
  - GLOSSODYNIA [None]
  - ORAL CANDIDIASIS [None]
  - ORAL MUCOSAL EXFOLIATION [None]
  - ORAL PAIN [None]
